FAERS Safety Report 5376924-8 (Version None)
Quarter: 2007Q3

REPORT INFORMATION
  Report Type: 
  Country: None (occurrence: None)
  Receive Date: 20070703
  Receipt Date: 20070628
  Transmission Date: 20080115
  Serious: Yes (Death, Other)
  Sender: FDA-Public Use
  Company Number: IT-AVENTIS-200715791GDDC

PATIENT
  Age: 55 Year
  Sex: Female

DRUGS (2)
  1. TAXOTERE [Suspect]
     Indication: BREAST CANCER
     Route: 042
  2. ZOLENDRONATE [Concomitant]
     Route: 042

REACTIONS (7)
  - BREAST CANCER [None]
  - CONDITION AGGRAVATED [None]
  - METASTASES TO BONE [None]
  - METASTASES TO CENTRAL NERVOUS SYSTEM [None]
  - PULMONARY FIBROSIS [None]
  - SKIN ATROPHY [None]
  - SYSTEMIC SCLEROSIS [None]
